FAERS Safety Report 21755696 (Version 1)
Quarter: 2022Q4

REPORT INFORMATION
  Report Type: Report from Study
  Country: US (occurrence: US)
  Receive Date: 20221220
  Receipt Date: 20221220
  Transmission Date: 20230113
  Serious: No
  Sender: FDA-Public Use
  Company Number: US-ABBVIE-4205515

PATIENT
  Age: 31 Year
  Sex: Female

DRUGS (2)
  1. HUMIRA [Suspect]
     Active Substance: ADALIMUMAB
     Indication: Colitis ulcerative
     Route: 058
  2. COVID-19 vaccine [Concomitant]
     Indication: COVID-19 immunisation
     Dosage: ONE IN ONCE
     Route: 030
     Dates: start: 202211, end: 202211

REACTIONS (1)
  - Sinus congestion [Recovering/Resolving]

NARRATIVE: CASE EVENT DATE: 20221101
